FAERS Safety Report 13495213 (Version 1)
Quarter: 2017Q2

REPORT INFORMATION
  Report Type: Spontaneous
  Country: US (occurrence: US)
  Receive Date: 20170427
  Receipt Date: 20170427
  Transmission Date: 20170830
  Serious: Yes (Other)
  Sender: FDA-Public Use
  Company Number: None

PATIENT
  Age: 59 Year
  Sex: Male
  Weight: 79.2 kg

DRUGS (5)
  1. BARIUM SULFATE [Suspect]
     Active Substance: BARIUM SULFATE
     Indication: COMPUTERISED TOMOGRAM
     Dosage: OTHER FREQUENCY:EVERY 1/2 HOUR;?
     Route: 048
     Dates: start: 20170320, end: 20170320
  2. VITAMIN C [Concomitant]
     Active Substance: ASCORBIC ACID
  3. PAXIL [Concomitant]
     Active Substance: PAROXETINE HYDROCHLORIDE
  4. VITAMIN E [Concomitant]
     Active Substance: .ALPHA.-TOCOPHEROL
  5. FENOFIBRATE. [Concomitant]
     Active Substance: FENOFIBRATE

REACTIONS (3)
  - Chills [None]
  - Hyperhidrosis [None]
  - Pyrexia [None]

NARRATIVE: CASE EVENT DATE: 20170320
